FAERS Safety Report 6465106-4 (Version None)
Quarter: 2009Q4

REPORT INFORMATION
  Report Type: 
  Country: None (occurrence: None)
  Receive Date: 20091201
  Receipt Date: 20090421
  Transmission Date: 20100525
  Serious: No
  Sender: FDA-Public Use
  Company Number: US-AMGEN-COG338601

PATIENT
  Sex: Male

DRUGS (2)
  1. ENBREL [Suspect]
     Indication: ANKYLOSING SPONDYLITIS
     Route: 058
     Dates: start: 20060201
  2. REMICADE [Concomitant]

REACTIONS (10)
  - ANKYLOSING SPONDYLITIS [None]
  - ARTHRALGIA [None]
  - BACK PAIN [None]
  - CATARACT [None]
  - HAEMOCHROMATOSIS [None]
  - NECK PAIN [None]
  - OSTEOARTHRITIS [None]
  - PAIN IN EXTREMITY [None]
  - SINUSITIS [None]
  - TOTAL LUNG CAPACITY DECREASED [None]
